FAERS Safety Report 25701540 (Version 1)
Quarter: 2025Q3

REPORT INFORMATION
  Report Type: Spontaneous
  Country: US (occurrence: US)
  Receive Date: 20250819
  Receipt Date: 20250819
  Transmission Date: 20251020
  Serious: Yes (Other)
  Sender: AMGEN
  Company Number: US-AMGEN-USASP2025161403

PATIENT

DRUGS (3)
  1. RITUXIMAB [Suspect]
     Active Substance: RITUXIMAB
     Indication: Renal transplant
     Route: 065
  2. Immunoglobulin [Concomitant]
     Indication: Renal transplant
     Route: 040
  3. TOCILIZUMAB [Concomitant]
     Active Substance: TOCILIZUMAB

REACTIONS (4)
  - Polyomavirus viraemia [Unknown]
  - Kidney transplant rejection [Unknown]
  - Off label use [Unknown]
  - Drug ineffective for unapproved indication [Unknown]
